FAERS Safety Report 6272666-5 (Version None)
Quarter: 2009Q3

REPORT INFORMATION
  Report Type: 
  Country: None (occurrence: None)
  Receive Date: 20090715
  Receipt Date: 20090715
  Transmission Date: 20100115
  Serious: Yes (Other)
  Sender: FDA-Public Use
  Company Number: None

PATIENT
  Sex: Female
  Weight: 113.3993 kg

DRUGS (1)
  1. DEXTROAMPHETAMINE SULFATE [Suspect]
     Indication: NARCOLEPSY
     Dosage: 3 UP TO 4X A DAY PO, ON GOING SINCE DIAGNOSED
     Route: 048

REACTIONS (6)
  - AGGRESSION [None]
  - ALOPECIA [None]
  - ANGER [None]
  - DIVORCED [None]
  - OCULAR HYPERAEMIA [None]
  - PERSONALITY CHANGE [None]
